FAERS Safety Report 8416802-0 (Version None)
Quarter: 2012Q2

REPORT INFORMATION
  Report Type: 
  Country: None (occurrence: None)
  Receive Date: 20120606
  Receipt Date: 20120530
  Transmission Date: 20120825
  Serious: Yes (Disabling)
  Sender: FDA-Public Use
  Company Number: US-MERCK-1107USA03603

PATIENT
  Age: 43 Year
  Sex: Female
  Weight: 59 kg

DRUGS (9)
  1. FOSAMAX [Suspect]
     Indication: OSTEOPENIA
     Route: 048
     Dates: start: 19950101, end: 20090701
  2. FOSAMAX [Suspect]
     Route: 048
     Dates: start: 19950101
  3. FOSAMAX [Suspect]
     Route: 065
  4. FOSAMAX [Suspect]
     Route: 065
  5. ALENDRONATE SODIUM [Suspect]
     Route: 048
     Dates: start: 20080406
  6. PROVERA [Concomitant]
     Indication: ARTIFICIAL MENOPAUSE
     Route: 065
  7. PREMARIN [Concomitant]
     Indication: ARTIFICIAL MENOPAUSE
     Route: 065
  8. FOSAMAX [Suspect]
     Indication: OSTEOPOROSIS
     Route: 048
     Dates: start: 19950101, end: 20090701
  9. FOSAMAX [Suspect]
     Route: 048
     Dates: start: 19950101

REACTIONS (12)
  - GINGIVAL INJURY [None]
  - OSTEONECROSIS OF JAW [None]
  - ABSCESS [None]
  - BLOOD CHOLESTEROL INCREASED [None]
  - PERIODONTAL DISEASE [None]
  - RHINITIS ALLERGIC [None]
  - GINGIVAL BLEEDING [None]
  - JAW DISORDER [None]
  - TOOTH DISORDER [None]
  - WEIGHT INCREASED [None]
  - EYE DISORDER [None]
  - FOOT FRACTURE [None]
